FAERS Safety Report 4435176-3 (Version None)
Quarter: 2004Q3

REPORT INFORMATION
  Report Type: 
  Country: None (occurrence: None)
  Receive Date: 20040827
  Receipt Date: 20040819
  Transmission Date: 20050211
  Serious: Yes (Hospitalization)
  Sender: FDA-Public Use
  Company Number: FR-ROCHE-377963

PATIENT
  Age: 67 Year
  Sex: Female
  Weight: 35 kg

DRUGS (4)
  1. ROCEPHIN [Suspect]
     Indication: SUPERINFECTION LUNG
     Route: 030
     Dates: start: 20040603, end: 20040612
  2. FONZYLANE [Concomitant]
     Dosage: FONZYLANE 300 MG
     Route: 048
     Dates: start: 20040416
  3. PRAXILENE [Concomitant]
     Dosage: PRAXILENE 200MG
     Route: 048
     Dates: start: 20040416
  4. PLAQUENIL [Concomitant]
     Route: 048
     Dates: start: 20040416

REACTIONS (1)
  - STEVENS-JOHNSON SYNDROME [None]
